FAERS Safety Report 6544506-8 (Version None)
Quarter: 2010Q1

REPORT INFORMATION
  Report Type: 
  Country: None (occurrence: None)
  Receive Date: 20100120
  Receipt Date: 20100120
  Transmission Date: 20100710
  Serious: Yes (Life-Threatening, Other)
  Sender: FDA-Public Use
  Company Number: None

PATIENT
  Age: 59 Year
  Sex: Male
  Weight: 87.5442 kg

DRUGS (1)
  1. CHANTIX [Suspect]
     Indication: SMOKING CESSATION THERAPY
     Dosage: 1 PER DAY EVERY DAY BUCCAL
     Route: 002
     Dates: start: 20090702, end: 20091008

REACTIONS (3)
  - IRRITABILITY [None]
  - SUICIDAL IDEATION [None]
  - THREAT OF REDUNDANCY [None]
